FAERS Safety Report 16890315 (Version 1)
Quarter: 2019Q4

REPORT INFORMATION
  Report Type: Spontaneous
  Country: US (occurrence: US)
  Receive Date: 20191004
  Receipt Date: 20191004
  Transmission Date: 20200122
  Serious: Yes (Hospitalization)
  Sender: FDA-Public Use
  Company Number: None

PATIENT
  Age: 60 Year
  Sex: Female
  Weight: 72 kg

DRUGS (1)
  1. LISINOPRIL/HCTZ -20MG/25MG [Suspect]
     Active Substance: HYDROCHLOROTHIAZIDE\LISINOPRIL
     Indication: HYPERTENSION
     Dosage: ?          QUANTITY:1 TABLET(S);?
     Route: 048

REACTIONS (7)
  - Thyroid mass [None]
  - Drug hypersensitivity [None]
  - Pancreatic cyst [None]
  - Product complaint [None]
  - Recalled product [None]
  - Pulmonary mass [None]
  - Hypersensitivity [None]

NARRATIVE: CASE EVENT DATE: 20190831
